FAERS Safety Report 17157710 (Version 1)
Quarter: 2019Q4

REPORT INFORMATION
  Report Type: Spontaneous
  Country: US (occurrence: US)
  Receive Date: 20191216
  Receipt Date: 20191216
  Transmission Date: 20200122
  Serious: No
  Sender: FDA-Public Use
  Company Number: US-BAYER-2019-226690

PATIENT
  Age: 76 Year
  Sex: Female

DRUGS (3)
  1. MIRALAX [Suspect]
     Active Substance: POLYETHYLENE GLYCOL 3350
     Indication: DIVERTICULITIS
     Dosage: 17 G, BID
     Route: 048
     Dates: start: 201803
  2. DULCOEASE [Suspect]
     Active Substance: DOCUSATE SODIUM
     Indication: DIVERTICULITIS
     Dosage: 1 OR 2 DF
     Route: 048
     Dates: start: 201803, end: 201804
  3. PROBIOTIC COMPLEX [Concomitant]

REACTIONS (3)
  - Off label use [Unknown]
  - Abdominal pain upper [Recovered/Resolved]
  - Product use in unapproved indication [Unknown]

NARRATIVE: CASE EVENT DATE: 2018
